FAERS Safety Report 17095171 (Version 1)
Quarter: 2019Q4

REPORT INFORMATION
  Report Type: Spontaneous
  Country: US (occurrence: US)
  Receive Date: 20191104
  Receipt Date: 20191104
  Transmission Date: 20200122
  Serious: No
  Sender: FDA-Public Use
  Company Number: None

PATIENT
  Age: 47 Year
  Sex: Female

DRUGS (1)
  1. RASUVO [Suspect]
     Active Substance: METHOTREXATE SODIUM
     Indication: OSTEOARTHRITIS
     Dosage: ?          OTHER DOSE:25MG/.5ML;?
     Route: 058
     Dates: start: 201904

REACTIONS (2)
  - Wheezing [None]
  - Throat irritation [None]

NARRATIVE: CASE EVENT DATE: 20191023
